FAERS Safety Report 24568956 (Version 1)
Quarter: 2024Q4

REPORT INFORMATION
  Report Type: Spontaneous
  Country: US (occurrence: US)
  Receive Date: 20241031
  Receipt Date: 20241031
  Transmission Date: 20250115
  Serious: No
  Sender: AMGEN
  Company Number: US-AMGEN-USASP2024212404

PATIENT
  Sex: Male

DRUGS (2)
  1. NEULASTA [Suspect]
     Active Substance: PEGFILGRASTIM
     Indication: Neutropenia
     Dosage: UNK (FIRST DOSE)
     Route: 058
     Dates: start: 20240912
  2. NEULASTA [Suspect]
     Active Substance: PEGFILGRASTIM
     Dosage: UNK (SECOND DOSE)
     Route: 058
     Dates: start: 20241018

REACTIONS (1)
  - Red blood cell count increased [Unknown]

NARRATIVE: CASE EVENT DATE: 20241024
